FAERS Safety Report 9903000 (Version 1)
Quarter: 2014Q1

REPORT INFORMATION
  Report Type: Spontaneous
  Country: BR (occurrence: BR)
  Receive Date: 20140217
  Receipt Date: 20140217
  Transmission Date: 20141002
  Serious: Yes (Other)
  Sender: FDA-Public Use
  Company Number: PHHY2014BR018176

PATIENT
  Age: 21 Year
  Sex: Female
  Weight: 66 kg

DRUGS (6)
  1. OXCARBAZEPINE [Suspect]
     Dosage: 600 MG, BID
  2. SERTRALINE [Suspect]
     Dosage: 100 MG, BID
  3. LEXAPRO [Suspect]
     Indication: SOMATISATION DISORDER
     Dosage: 20 MG, QD
     Dates: start: 20140209
  4. LEXAPRO [Suspect]
     Indication: SOCIAL PROBLEM
  5. SEROQUEL XRO [Suspect]
     Indication: SOMATISATION DISORDER
     Dosage: 50 MG, QD
     Dates: start: 20140209
  6. SEROQUEL XRO [Suspect]
     Indication: SOCIAL PROBLEM

REACTIONS (3)
  - Hallucination [Unknown]
  - Dizziness [Unknown]
  - Asthenia [Unknown]
